FAERS Safety Report 8612053-5 (Version None)
Quarter: 2012Q3

REPORT INFORMATION
  Report Type: 
  Country: None (occurrence: None)
  Receive Date: 20120809
  Receipt Date: 20120727
  Transmission Date: 20120928
  Serious: Yes (Other)
  Sender: FDA-Public Use
  Company Number: 1206-321

PATIENT
  Age: 84 Year
  Sex: Female

DRUGS (13)
  1. METOPROLOL TARTRATE [Concomitant]
  2. MULTIVITAMIN (MULITIVITAMIN) /00831701/) [Concomitant]
  3. NEURONTIN [Concomitant]
  4. ASCORBIC ACID [Concomitant]
  5. EYLEA [Suspect]
  6. PROGESTERONE [Concomitant]
  7. ESTRADIOL [Concomitant]
  8. TRAMADOL HCL [Concomitant]
  9. VITAMIN A [Concomitant]
  10. VITAMIN I-SIGHT (VITAMINS NOS) [Concomitant]
  11. SYNTHROID [Concomitant]
  12. PREVACID [Concomitant]
  13. VITAMIN D [Concomitant]

REACTIONS (1)
  - MALIGNANT MELANOMA IN SITU [None]
